FAERS Safety Report 8588985-3 (Version None)
Quarter: 2012Q3

REPORT INFORMATION
  Report Type: 
  Country: None (occurrence: None)
  Receive Date: 20120813
  Receipt Date: 20120808
  Transmission Date: 20120928
  Serious: Yes (Death, Hospitalization)
  Sender: FDA-Public Use
  Company Number: IT-SANOFI-AVENTIS-2012SA057160

PATIENT
  Age: 34 Year
  Sex: Male
  Weight: 81 kg

DRUGS (4)
  1. BLINDED THERAPY [Suspect]
     Indication: NON-SMALL CELL LUNG CANCER STAGE IV
     Dates: start: 20120615, end: 20120615
  2. PREDNISONE TAB [Concomitant]
     Indication: INFLAMMATION
     Dates: start: 20120614, end: 20120728
  3. DOCETAXEL [Suspect]
     Indication: NON-SMALL CELL LUNG CANCER STAGE IV
     Route: 042
     Dates: start: 20120615, end: 20120615
  4. LANSOPRAZOLE [Concomitant]
     Indication: GASTRIC DISORDER
     Dates: start: 20120615, end: 20120728

REACTIONS (2)
  - DEATH [None]
  - ATRIAL FIBRILLATION [None]
